FAERS Safety Report 25955404 (Version 1)
Quarter: 2025Q4

REPORT INFORMATION
  Report Type: Spontaneous
  Country: GB (occurrence: GB)
  Receive Date: 20251024
  Receipt Date: 20251024
  Transmission Date: 20260118
  Serious: Yes (Hospitalization, Other)
  Sender: TORRENT PHARMA INC.
  Company Number: None

PATIENT
  Sex: Female
  Weight: 67 kg

DRUGS (4)
  1. TOPIRAMATE [Suspect]
     Active Substance: TOPIRAMATE
     Indication: Migraine
     Dosage: 25MG BD
     Route: 065
     Dates: start: 20250807, end: 20251011
  2. ESTRADIOL [Concomitant]
     Active Substance: ESTRADIOL
     Indication: Hormone replacement therapy
     Dosage: UNKNOWN
     Route: 065
     Dates: start: 20220617
  3. NIFEDIPINE [Concomitant]
     Active Substance: NIFEDIPINE
     Indication: Raynaud^s phenomenon
     Dosage: UNKNOWN
     Route: 065
     Dates: start: 20190408
  4. ZOLMITRIPTAN [Concomitant]
     Active Substance: ZOLMITRIPTAN
     Indication: Migraine
     Dosage: UNKNOWN
     Route: 065
     Dates: start: 20100701

REACTIONS (3)
  - Anxiety [Recovering/Resolving]
  - Chest pain [Recovered/Resolved]
  - Fear of death [Recovering/Resolving]

NARRATIVE: CASE EVENT DATE: 20250917
